FAERS Safety Report 12331904 (Version 1)
Quarter: 2016Q2

REPORT INFORMATION
  Report Type: Spontaneous
  Country: US (occurrence: US)
  Receive Date: 20160504
  Receipt Date: 20160504
  Transmission Date: 20160815
  Serious: No
  Sender: FDA-Public Use
  Company Number: US-ELI_LILLY_AND_COMPANY-US201604002384

PATIENT
  Age: 69 Year
  Sex: Female

DRUGS (1)
  1. FORTEO [Suspect]
     Active Substance: TERIPARATIDE
     Indication: STRESS FRACTURE
     Dosage: UNK, QD
     Route: 065
     Dates: start: 201602, end: 20160318

REACTIONS (4)
  - Parathyroid disorder [Unknown]
  - Off label use [Unknown]
  - Fall [Unknown]
  - Lower limb fracture [Unknown]

NARRATIVE: CASE EVENT DATE: 201602
